FAERS Safety Report 5616611-1 (Version None)
Quarter: 2008Q1

REPORT INFORMATION
  Report Type: 
  Country: None (occurrence: None)
  Receive Date: 20080207
  Receipt Date: 20071002
  Transmission Date: 20080703
  Serious: No
  Sender: FDA-Public Use
  Company Number: A0685632A

PATIENT
  Age: 62 Year
  Sex: Female

DRUGS (6)
  1. PAXIL CR [Suspect]
     Indication: ANXIETY DISORDER
     Dosage: 50MG PER DAY
     Route: 048
     Dates: start: 20020101
  2. MIRTAZAPINE [Concomitant]
  3. HYDROXYZINE [Concomitant]
  4. VITAMINS [Concomitant]
  5. SUPPLEMENT [Concomitant]
  6. ADVIL [Concomitant]

REACTIONS (11)
  - ABDOMINAL PAIN UPPER [None]
  - BLOOD CHOLESTEROL INCREASED [None]
  - COUGH [None]
  - HOT FLUSH [None]
  - MENOPAUSAL SYMPTOMS [None]
  - MOOD SWINGS [None]
  - NASOPHARYNGITIS [None]
  - NERVOUSNESS [None]
  - PANIC ATTACK [None]
  - PHARYNGOLARYNGEAL PAIN [None]
  - SNEEZING [None]
